FAERS Safety Report 16053809 (Version 1)
Quarter: 2019Q1

REPORT INFORMATION
  Report Type: Spontaneous
  Country: US (occurrence: US)
  Receive Date: 20190308
  Receipt Date: 20190308
  Transmission Date: 20190418
  Serious: Yes (Death)
  Sender: FDA-Public Use
  Company Number: US-MALLINCKRODT-T201902289

PATIENT

DRUGS (1)
  1. UVADEX [Suspect]
     Active Substance: METHOXSALEN
     Indication: OBLITERATIVE BRONCHIOLITIS
     Dosage: UNK
     Route: 057

REACTIONS (3)
  - Obliterative bronchiolitis [Fatal]
  - Condition aggravated [Fatal]
  - Product use in unapproved indication [Unknown]
